FAERS Safety Report 15043280 (Version 1)
Quarter: 2018Q2

REPORT INFORMATION
  Report Type: Report from Study
  Country: None (occurrence: US)
  Receive Date: 20180621
  Receipt Date: 20180621
  Transmission Date: 20180711
  Serious: Yes (Hospitalization, Other)
  Sender: FDA-Public Use
  Company Number: US-ABBVIE-17K-163-2180486-00

PATIENT
  Age: 68 Year
  Sex: Female

DRUGS (2)
  1. HUMIRA [Suspect]
     Active Substance: ADALIMUMAB
     Indication: CROHN^S DISEASE
     Route: 058
     Dates: start: 20171003
  2. HUMIRA [Suspect]
     Active Substance: ADALIMUMAB
     Route: 058

REACTIONS (15)
  - Muscle spasms [Unknown]
  - Eating disorder [Unknown]
  - Crohn^s disease [Not Recovered/Not Resolved]
  - Abdominal discomfort [Recovering/Resolving]
  - Nodule [Unknown]
  - Nausea [Not Recovered/Not Resolved]
  - Drug level increased [Unknown]
  - Dyspepsia [Recovering/Resolving]
  - Abdominal pain upper [Unknown]
  - Vomiting [Unknown]
  - Intestinal stenosis [Not Recovered/Not Resolved]
  - Postoperative adhesion [Unknown]
  - Hernia [Recovering/Resolving]
  - Vomiting [Recovered/Resolved]
  - Dehydration [Unknown]

NARRATIVE: CASE EVENT DATE: 2017
